FAERS Safety Report 7075054-7 (Version None)
Quarter: 2010Q4

REPORT INFORMATION
  Report Type: 
  Country: None (occurrence: None)
  Receive Date: 20101029
  Receipt Date: 20100114
  Transmission Date: 20110411
  Serious: No
  Sender: FDA-Public Use
  Company Number: US-WYE-H13053110

PATIENT
  Age: 55 Year
  Sex: Female
  Weight: 67.19 kg

DRUGS (3)
  1. ADVIL PM [Suspect]
     Indication: PAIN
     Dosage: 2 CAPLETS AS NEEDED
     Route: 048
     Dates: start: 20100101, end: 20100101
  2. ADVIL PM [Suspect]
     Dosage: 2 CAPLETS AS NEEDED
     Route: 048
     Dates: start: 20100101
  3. CENTRUM [Concomitant]

REACTIONS (1)
  - HEADACHE [None]
